FAERS Safety Report 7630103-X (Version None)
Quarter: 2011Q3

REPORT INFORMATION
  Report Type: 
  Country: None (occurrence: None)
  Receive Date: 20110722
  Receipt Date: 20110719
  Transmission Date: 20111222
  Serious: No
  Sender: FDA-Public Use
  Company Number: US-PFIZER INC-2011163138

PATIENT
  Sex: Male
  Weight: 61.678 kg

DRUGS (4)
  1. CHANTIX [Interacting]
     Dosage: 1 MG, 2X/DAY
     Route: 048
     Dates: start: 20110701
  2. CLOZAPINE [Concomitant]
     Indication: NERVOUSNESS
     Dosage: UNK
  3. CHANTIX [Suspect]
     Indication: SMOKING CESSATION THERAPY
     Dosage: 0.5 MG, 1X/DAY
     Route: 048
     Dates: start: 20080801, end: 20080101
  4. PAXIL [Concomitant]
     Indication: DEPRESSION
     Dosage: UNK

REACTIONS (3)
  - HYPERSOMNIA [None]
  - WITHDRAWAL SYNDROME [None]
  - FEELING ABNORMAL [None]
